FAERS Safety Report 7308192-1 (Version None)
Quarter: 2011Q1

REPORT INFORMATION
  Report Type: 
  Country: None (occurrence: None)
  Receive Date: 20110223
  Receipt Date: 20110214
  Transmission Date: 20110831
  Serious: Yes (Hospitalization)
  Sender: FDA-Public Use
  Company Number: US-BRISTOL-MYERS SQUIBB COMPANY-15548134

PATIENT
  Age: 69 Year
  Sex: Female

DRUGS (7)
  1. AMBIEN [Concomitant]
     Indication: SLEEP DISORDER
     Dosage: TAKE AT NIGHT
  2. ABILIFY [Suspect]
  3. CHOLESTEROL MEDICATION [Concomitant]
  4. ASPIRIN [Concomitant]
  5. ZESTRIL [Concomitant]
  6. ATIVAN [Concomitant]
  7. PRAVACHOL [Concomitant]
     Dosage: AT BED TIME

REACTIONS (1)
  - CEREBROVASCULAR ACCIDENT [None]
